FAERS Safety Report 10970468 (Version 3)
Quarter: 2015Q2

REPORT INFORMATION
  Report Type: Spontaneous
  Country: JP (occurrence: JP)
  Receive Date: 20150331
  Receipt Date: 20150508
  Transmission Date: 20150821
  Serious: Yes (Hospitalization, Other)
  Sender: FDA-Public Use
  Company Number: JP-009507513-1503JPN013833

PATIENT
  Age: 34 Year
  Sex: Male
  Weight: 127 kg

DRUGS (12)
  1. MUSCURATE [Suspect]
     Active Substance: VECURONIUM BROMIDE
     Dosage: DAILY DOSE FREQUENCY UNKNOWN
     Route: 041
     Dates: start: 20150325, end: 20150326
  2. CITOSOL [Concomitant]
     Active Substance: THIAMYLAL SODIUM
     Indication: SEDATION
     Dosage: 5 G, QD
     Route: 041
     Dates: start: 20150323, end: 20150323
  3. FENTANYL. [Concomitant]
     Active Substance: FENTANYL
     Indication: ANALGESIC THERAPY
     Dosage: 500 MICROGRAM, QD
     Route: 042
     Dates: start: 20150324, end: 20150324
  4. PERDIPINE [Concomitant]
     Active Substance: NICARDIPINE HYDROCHLORIDE
     Indication: BLOOD PRESSURE DECREASED
     Dosage: DAILY DOSAGE UNKNOWN
     Route: 041
     Dates: start: 20150323, end: 20150405
  5. MUSCURATE [Suspect]
     Active Substance: VECURONIUM BROMIDE
     Indication: SEDATION
     Dosage: (DAILY DOSE FREQUENCTY UNKNOWN)
     Route: 041
     Dates: start: 20150324, end: 20150325
  6. DEXTROSE. [Concomitant]
     Active Substance: DEXTROSE
     Dosage: 250 ML, QD (DIVIDED DOSE FREQUENCY UNKNOWN)
     Route: 041
     Dates: start: 20150323, end: 20150323
  7. ULTIVA [Concomitant]
     Active Substance: REMIFENTANIL HYDROCHLORIDE
     Indication: ANALGESIC THERAPY
     Dosage: DAILY DOSE UNKNOWN
     Route: 041
     Dates: start: 20150323, end: 20150324
  8. ESLAX INTRAVENOUS 25MG/2.5ML [Suspect]
     Active Substance: ROCURONIUM BROMIDE
     Indication: NEUROMUSCULAR BLOCKING THERAPY
     Dosage: 250 MG, QD (DIVIDED DOSE FREQUENCY UNKNOWN)
     Route: 042
     Dates: start: 20150323, end: 20150324
  9. CITOSOL [Concomitant]
     Active Substance: THIAMYLAL SODIUM
     Dosage: DAILY DOSAGE UNKNOWN
     Route: 041
     Dates: start: 20150323, end: 20150325
  10. MUSCURATE [Suspect]
     Active Substance: VECURONIUM BROMIDE
     Indication: HYPOTONIA
     Dosage: 30 MG, QD (DIVIDED DOSE FREQUENCY UNKNOWN)
     Route: 041
     Dates: start: 20150323, end: 20150323
  11. SODIUM CHLORIDE. [Concomitant]
     Active Substance: SODIUM CHLORIDE
     Dosage: 100 ML, QD DIVIDED DOSE FREQUENCY UNKNOWN
     Route: 041
     Dates: start: 20150323, end: 20150323
  12. NITROGLYCERIN. [Concomitant]
     Active Substance: NITROGLYCERIN
     Indication: BLOOD PRESSURE DECREASED
     Dosage: UNK
     Route: 041
     Dates: start: 20150323, end: 20150324

REACTIONS (2)
  - Rhabdomyolysis [Recovered/Resolved]
  - Renal disorder [Recovered/Resolved]

NARRATIVE: CASE EVENT DATE: 20150324
